FAERS Safety Report 6694317-8 (Version None)
Quarter: 2010Q2

REPORT INFORMATION
  Report Type: 
  Country: None (occurrence: None)
  Receive Date: 20100423
  Receipt Date: 20100415
  Transmission Date: 20101027
  Serious: Yes (Other)
  Sender: FDA-Public Use
  Company Number: TW-PFIZER INC-2010047496

PATIENT
  Sex: Female

DRUGS (1)
  1. AMLODIPINE BESYLATE [Suspect]
     Dosage: UNK

REACTIONS (3)
  - MUSCULOSKELETAL STIFFNESS [None]
  - OCULAR HYPERAEMIA [None]
  - SOMNOLENCE [None]
